FAERS Safety Report 22304057 (Version 1)
Quarter: 2023Q2

REPORT INFORMATION
  Report Type: Spontaneous
  Country: US (occurrence: None)
  Receive Date: 20230509
  Receipt Date: 20230509
  Transmission Date: 20230721
  Serious: Yes (Hospitalization)
  Sender: FDA-Public Use
  Company Number: None

PATIENT
  Age: 56 Year
  Sex: Female
  Weight: 51.75 kg

DRUGS (5)
  1. ZOFRAN [Suspect]
     Active Substance: ONDANSETRON HYDROCHLORIDE
     Indication: Drug therapy
     Route: 042
  2. PHENOBARBITAL [Concomitant]
     Active Substance: PHENOBARBITAL
  3. TOPIRAMATE [Concomitant]
     Active Substance: TOPIRAMATE
  4. aspirin [Concomitant]
  5. VITAMIN D [Concomitant]
     Active Substance: VITAMIN D NOS

REACTIONS (5)
  - Atrial fibrillation [None]
  - Blood pressure decreased [None]
  - Heart rate increased [None]
  - Urinary retention [None]
  - Chest pain [None]

NARRATIVE: CASE EVENT DATE: 20230223
